FAERS Safety Report 14831895 (Version 1)
Quarter: 2018Q2

REPORT INFORMATION
  Report Type: Spontaneous
  Country: US (occurrence: US)
  Receive Date: 20180409
  Receipt Date: 20180409
  Transmission Date: 20180711
  Serious: Yes (Disabling)
  Sender: FDA-Public Use
  Company Number: None

PATIENT
  Age: 32 Year
  Sex: Female
  Weight: 51.75 kg

DRUGS (9)
  1. ZYRTEC [Suspect]
     Active Substance: CETIRIZINE HYDROCHLORIDE
  2. SYMBICORT [Concomitant]
     Active Substance: BUDESONIDE\FORMOTEROL FUMARATE DIHYDRATE
  3. XOLAIR [Suspect]
     Active Substance: OMALIZUMAB
     Indication: URTICARIA
     Route: 058
     Dates: start: 20150601
  4. HYDROCORTISONE. [Concomitant]
     Active Substance: HYDROCORTISONE
  5. TRIAMCINILONE [Concomitant]
     Active Substance: TRIAMCINOLONE
  6. TUMERIC [Concomitant]
     Active Substance: HERBALS\TURMERIC
  7. MULTI VITAMIN [Concomitant]
     Active Substance: VITAMINS
  8. HERBAL WORMWOOD EXTRACT [Concomitant]
  9. RANITIDINE. [Concomitant]
     Active Substance: RANITIDINE

REACTIONS (2)
  - Drug ineffective [None]
  - Solar urticaria [None]

NARRATIVE: CASE EVENT DATE: 20160409
